FAERS Safety Report 19056577 (Version 3)
Quarter: 2021Q2

REPORT INFORMATION
  Report Type: Spontaneous
  Country: US (occurrence: US)
  Receive Date: 20210325
  Receipt Date: 20210601
  Transmission Date: 20210717
  Serious: Yes (Other)
  Sender: FDA-Public Use
  Company Number: US-GLAXOSMITHKLINE-USCH2021014693

PATIENT
  Age: 71 Year
  Sex: Female

DRUGS (1)
  1. SENSODYNE PRONAMEL INTENSIVE ENAMEL REPAIR CLEAN MINT [Suspect]
     Active Substance: POTASSIUM NITRATE\SODIUM FLUORIDE
     Indication: DENTAL DISORDER PROPHYLAXIS
     Dosage: UNK
     Dates: start: 20210203, end: 20210211

REACTIONS (17)
  - Burning sensation [Unknown]
  - Throat irritation [Unknown]
  - Gingival pain [Unknown]
  - Oral mucosal blistering [Unknown]
  - Facial pain [Unknown]
  - Expired product administered [Unknown]
  - Gingival discomfort [Unknown]
  - Headache [Unknown]
  - Sleep disorder [Unknown]
  - Eye pain [Unknown]
  - Tongue discomfort [Unknown]
  - Pharyngeal erythema [Unknown]
  - Dysphagia [Unknown]
  - Loss of personal independence in daily activities [Unknown]
  - Oropharyngeal pain [Unknown]
  - Oral discomfort [Unknown]
  - Dry throat [Unknown]

NARRATIVE: CASE EVENT DATE: 20210205
